FAERS Safety Report 8592488-X (Version None)
Quarter: 2012Q3

REPORT INFORMATION
  Report Type: 
  Country: None (occurrence: None)
  Receive Date: 20120814
  Receipt Date: 20120809
  Transmission Date: 20120928
  Serious: Yes (Hospitalization)
  Sender: FDA-Public Use
  Company Number: FR-MERCK-1208FRA004602

PATIENT

DRUGS (3)
  1. REQUIP [Suspect]
     Dosage: 4 MG, QD
     Route: 048
     Dates: end: 20120201
  2. VERAPAMIL [Concomitant]
     Dosage: 240 MG, QD
     Route: 048
  3. CARBIDOPA [Suspect]
     Indication: PARKINSON'S DISEASE
     Dosage: 50 MG, QID
     Dates: end: 20120201

REACTIONS (2)
  - HALLUCINATION [None]
  - AGGRESSION [None]
